FAERS Safety Report 4922050-9 (Version None)
Quarter: 2006Q1

REPORT INFORMATION
  Report Type: 
  Country: None (occurrence: None)
  Receive Date: 20060222
  Receipt Date: 20060222
  Transmission Date: 20060701
  Serious: Yes (Hospitalization)
  Sender: FDA-Public Use
  Company Number: None

PATIENT
  Age: 78 Year
  Sex: Female
  Weight: 60.3284 kg

DRUGS (9)
  1. CELECOXIB [Suspect]
     Indication: PAIN
     Dosage: 200MG PO DAILY   CHRONIC
     Route: 048
  2. KETOROLAC [Suspect]
     Indication: PAIN
     Dosage: 15 MG IV OTO
     Dates: start: 20050928
  3. DETROL [Concomitant]
  4. CELEBREX [Concomitant]
  5. RANITIDINE [Concomitant]
  6. ENALAPRIL MALEATE [Concomitant]
  7. EFFEXOR XR [Concomitant]
  8. ZOCOR [Concomitant]
  9. TOPROL [Concomitant]

REACTIONS (5)
  - DEHYDRATION [None]
  - HAEMATEMESIS [None]
  - POST PROCEDURAL COMPLICATION [None]
  - RENAL FAILURE [None]
  - STRESS [None]
